FAERS Safety Report 4578015-2 (Version None)
Quarter: 2005Q1

REPORT INFORMATION
  Report Type: 
  Country: None (occurrence: None)
  Receive Date: 20050209
  Receipt Date: 20050128
  Transmission Date: 20050727
  Serious: Yes (Other)
  Sender: FDA-Public Use
  Company Number: 2005020873

PATIENT
  Age: 13 Year
  Sex: Female

DRUGS (1)
  1. CETIRIZINE/PSEUDOEPHEDRINE (PSEUDOEPHEDRINE, CETIRIZINE) [Suspect]
     Indication: INFLUENZA
     Dosage: 5/120 MG (1 D), ORAL
     Route: 048
     Dates: start: 20041215, end: 20041215

REACTIONS (4)
  - HALLUCINATION [None]
  - HYPOTENSION [None]
  - SYNCOPE [None]
  - VOMITING [None]
